FAERS Safety Report 9672206 (Version 1)
Quarter: 2013Q4

REPORT INFORMATION
  Report Type: Spontaneous
  Country: US (occurrence: US)
  Receive Date: 20131106
  Receipt Date: 20131106
  Transmission Date: 20140711
  Serious: No
  Sender: FDA-Public Use
  Company Number: US-ENDO PHARMACEUTICALS INC.-HCDA20130047

PATIENT
  Age: 33 Year
  Sex: Male
  Weight: 81.72 kg

DRUGS (3)
  1. HYDROCODONE/ACETAMINOPHEN 10MG/500MG [Suspect]
     Dosage: 40/2000 MG
     Route: 048
     Dates: start: 20121212, end: 201212
  2. OMEPRAZOLE [Concomitant]
     Indication: GASTROOESOPHAGEAL REFLUX DISEASE
     Route: 065
  3. METAXALONE [Concomitant]
     Indication: PRODUCT USED FOR UNKNOWN INDICATION
     Route: 065

REACTIONS (2)
  - Vomiting [Unknown]
  - Nausea [Unknown]
